FAERS Safety Report 7155739-4 (Version None)
Quarter: 2010Q4

REPORT INFORMATION
  Report Type: 
  Country: None (occurrence: None)
  Receive Date: 20101123
  Receipt Date: 20100907
  Transmission Date: 20110411
  Serious: No
  Sender: FDA-Public Use
  Company Number: 018362

PATIENT
  Sex: Female
  Weight: 50.8 kg

DRUGS (5)
  1. CIMZIA [Suspect]
     Indication: COLITIS ULCERATIVE
     Dosage: (SUBCUTANEOUS) (400 MG 1X/MONTH SUBCUTANEOUS)
     Route: 058
     Dates: start: 20100714
  2. CIMZIA [Suspect]
     Indication: COLITIS ULCERATIVE
     Dosage: (SUBCUTANEOUS) (400 MG 1X/MONTH SUBCUTANEOUS)
     Route: 058
     Dates: start: 20100908
  3. MESALAMINE [Concomitant]
  4. CORTICOSTEROIDS [Concomitant]
  5. SYNTHROID [Concomitant]

REACTIONS (3)
  - FREQUENT BOWEL MOVEMENTS [None]
  - HAEMATOCHEZIA [None]
  - OFF LABEL USE [None]
